FAERS Safety Report 8037940-0 (Version None)
Quarter: 2012Q1

REPORT INFORMATION
  Report Type: 
  Country: None (occurrence: None)
  Receive Date: 20120111
  Receipt Date: 20111230
  Transmission Date: 20120608
  Serious: No
  Sender: FDA-Public Use
  Company Number: US-ASTRAZENECA-2011SE02328

PATIENT
  Age: 57 Year
  Sex: Female

DRUGS (2)
  1. NEXIUM [Suspect]
     Route: 048
     Dates: start: 20091001
  2. SEROQUEL [Suspect]
     Indication: BIPOLAR DISORDER
     Route: 048
     Dates: start: 20091001, end: 20100101

REACTIONS (10)
  - FEELING ABNORMAL [None]
  - DRUG INEFFECTIVE [None]
  - CONCUSSION [None]
  - RESTLESS LEGS SYNDROME [None]
  - INSOMNIA [None]
  - BIPOLAR DISORDER [None]
  - GASTROOESOPHAGEAL REFLUX DISEASE [None]
  - ARTHRITIS [None]
  - VOMITING [None]
  - DRUG DOSE OMISSION [None]
